FAERS Safety Report 14703731 (Version 3)
Quarter: 2019Q2

REPORT INFORMATION
  Report Type: Spontaneous
  Country: US (occurrence: US)
  Receive Date: 20180402
  Receipt Date: 20190410
  Transmission Date: 20190711
  Serious: Yes (Other)
  Sender: FDA-Public Use
  Company Number: US-PFIZER INC-2018128688

PATIENT
  Age: 33 Year
  Sex: Female
  Weight: 110.66 kg

DRUGS (6)
  1. FRAGMIN [Suspect]
     Active Substance: DALTEPARIN SODIUM
     Dosage: UNK
     Dates: start: 201402, end: 20180403
  2. VIT D [Concomitant]
     Active Substance: VITAMIN D NOS
     Dosage: UNK
     Dates: start: 201301
  3. VIT D [Concomitant]
     Active Substance: VITAMIN D NOS
     Dosage: 5000 IU, (M, W, F)
  4. FRAGMIN [Suspect]
     Active Substance: DALTEPARIN SODIUM
     Dosage: UNK
     Dates: start: 20190226
  5. FRAGMIN [Suspect]
     Active Substance: DALTEPARIN SODIUM
     Dosage: UNK
     Dates: start: 2010, end: 201103
  6. FRAGMIN [Suspect]
     Active Substance: DALTEPARIN SODIUM
     Dosage: UNK
     Dates: start: 201301

REACTIONS (39)
  - Diabetes mellitus [Unknown]
  - Breast cancer [Unknown]
  - Arthralgia [Unknown]
  - Dysphagia [Unknown]
  - Thyroid disorder [Unknown]
  - Diarrhoea [Unknown]
  - Lymphocyte count increased [Unknown]
  - Breast mass [Unknown]
  - Gastroenteritis [Recovering/Resolving]
  - Peripheral swelling [Unknown]
  - Swelling face [Unknown]
  - Onychoclasis [Unknown]
  - Oesophageal spasm [Unknown]
  - Glycosylated haemoglobin increased [Unknown]
  - Pain [Unknown]
  - Headache [Unknown]
  - C-reactive protein increased [Unknown]
  - Nocturnal dyspnoea [Unknown]
  - Papilloma [Unknown]
  - Blood glucose increased [Unknown]
  - Alanine aminotransferase increased [Unknown]
  - Alopecia [Unknown]
  - Epstein-Barr virus infection [Unknown]
  - Aspartate aminotransferase increased [Unknown]
  - Pulmonary embolism [Unknown]
  - Thyroiditis chronic [Unknown]
  - Gastritis [Unknown]
  - Pain in extremity [Not Recovered/Not Resolved]
  - Cyst [Unknown]
  - Hypercoagulation [Unknown]
  - Facial pain [Unknown]
  - Migraine [Unknown]
  - Vitamin D decreased [Unknown]
  - Chest pain [Not Recovered/Not Resolved]
  - Muscle twitching [Unknown]
  - Blister [Unknown]
  - Back pain [Not Recovered/Not Resolved]
  - Goitre [Unknown]
  - Breast discharge [Unknown]

NARRATIVE: CASE EVENT DATE: 201301
